FAERS Safety Report 5334499-3 (Version None)
Quarter: 2007Q2

REPORT INFORMATION
  Report Type: 
  Country: None (occurrence: None)
  Receive Date: 20070308
  Receipt Date: 20061128
  Transmission Date: 20071010
  Serious: No
  Sender: FDA-Public Use
  Company Number: 2006-BP-13870BP

PATIENT
  Age: 72 Year
  Sex: Female

DRUGS (6)
  1. SPIRIVA [Suspect]
     Indication: EMPHYSEMA
     Dosage: 18 MCG (18 MCG, 1 IN 1 D), IH
     Route: 055
     Dates: start: 20050201
  2. ADVAIR (SERETIDE) [Concomitant]
  3. POTASSIUM (POTASSIUM) [Concomitant]
  4. PREDNISONE TAB [Concomitant]
  5. HYDROCHLOROTHIAZIDE [Concomitant]
  6. RANITIDINE [Concomitant]

REACTIONS (5)
  - EYE SWELLING [None]
  - FEELING ABNORMAL [None]
  - OCULAR HYPERAEMIA [None]
  - VISION BLURRED [None]
  - WHEEZING [None]
